FAERS Safety Report 4500668-5 (Version None)
Quarter: 2004Q4

REPORT INFORMATION
  Report Type: 
  Country: None (occurrence: None)
  Receive Date: 20041109
  Receipt Date: 20041022
  Transmission Date: 20050328
  Serious: Yes (Hospitalization, Other)
  Sender: FDA-Public Use
  Company Number: USA040362597

PATIENT
  Age: 83 Year
  Sex: Female
  Weight: 40 kg

DRUGS (6)
  1. FORTEO [Suspect]
     Indication: OSTEOPOROSIS
     Dosage: 20 UG DAY
     Dates: start: 20040301
  2. SYNTHROID [Concomitant]
  3. MAXZIDE [Concomitant]
  4. CALCIUM [Concomitant]
  5. VITAMIN NOS [Concomitant]
  6. CELEBREX [Concomitant]

REACTIONS (9)
  - ALOPECIA [None]
  - CARDIAC DISORDER [None]
  - CARDIAC PROCEDURE COMPLICATION [None]
  - CEREBROVASCULAR ACCIDENT [None]
  - CORONARY ARTERIAL STENT INSERTION [None]
  - DYSPNOEA [None]
  - FEELING ABNORMAL [None]
  - HEART RATE INCREASED [None]
  - PHARMACEUTICAL PRODUCT COMPLAINT [None]
